FAERS Safety Report 7782569-2 (Version None)
Quarter: 2011Q3

REPORT INFORMATION
  Report Type: 
  Country: None (occurrence: None)
  Receive Date: 20110923
  Receipt Date: 20110916
  Transmission Date: 20111222
  Serious: Yes (Hospitalization, Other)
  Sender: FDA-Public Use
  Company Number: 2011SP016578

PATIENT
  Age: 24 Year
  Sex: Female
  Weight: 89.8122 kg

DRUGS (1)
  1. NUVARING [Suspect]
     Indication: CONTRACEPTION
     Dates: start: 20090409, end: 20090424

REACTIONS (12)
  - EMOTIONAL DISORDER [None]
  - MENTAL DISORDER [None]
  - ATELECTASIS [None]
  - LEUKOCYTOSIS [None]
  - SINUS TACHYCARDIA [None]
  - INTERNATIONAL NORMALISED RATIO DECREASED [None]
  - PULMONARY EMBOLISM [None]
  - HYPERCOAGULATION [None]
  - CONSTIPATION [None]
  - PULMONARY VALVE INCOMPETENCE [None]
  - PLEURISY [None]
  - PNEUMONIA [None]
